FAERS Safety Report 8987921 (Version 1)
Quarter: 2012Q4

REPORT INFORMATION
  Report Type: Report from Study
  Country: US (occurrence: US)
  Receive Date: 20121227
  Receipt Date: 20121227
  Transmission Date: 20130627
  Serious: Yes (Hospitalization)
  Sender: FDA-Public Use
  Company Number: US-GENZYME-CAMP-1002648

PATIENT
  Age: 41 Year
  Sex: Female
  Weight: 69.84 kg

DRUGS (5)
  1. ALEMTUZUMAB [Suspect]
     Indication: MULTIPLE SCLEROSIS
     Dosage: UNK UNK, UNK
     Route: 065
  2. MODAFINIL [Concomitant]
     Indication: FATIGUE
     Dosage: 100 mg, qd
     Route: 048
     Dates: start: 20100101
  3. CALCIUM CITRATE [Concomitant]
     Indication: MEDICAL DIET
     Dosage: 600 mg, qd
     Route: 048
     Dates: start: 20121214
  4. MAGNESIUM [Concomitant]
     Indication: MEDICAL DIET
     Dosage: 400 mg, qd
     Route: 048
     Dates: start: 20120726
  5. VITAMIN D3 [Concomitant]
     Indication: MEDICAL DIET
     Dosage: 1000 mg, qd
     Route: 048
     Dates: start: 20100715

REACTIONS (1)
  - Hypothyroidism [Not Recovered/Not Resolved]
